FAERS Safety Report 22347628 (Version 3)
Quarter: 2024Q4

REPORT INFORMATION
  Report Type: Spontaneous
  Country: BR (occurrence: BR)
  Receive Date: 20230522
  Receipt Date: 20241120
  Transmission Date: 20250115
  Serious: Yes (Other)
  Sender: CELLTRION
  Company Number: BR-CELLTRION INC.-2023BR010351

PATIENT

DRUGS (5)
  1. INFLIXIMAB [Suspect]
     Active Substance: INFLIXIMAB
     Indication: Crohn^s disease
     Dosage: 9 AMPOULES EVERY 2 MONTHS
     Route: 042
     Dates: start: 20220630
  2. INFLIXIMAB [Suspect]
     Active Substance: INFLIXIMAB
     Dosage: TWO EMERGENCY INFUSIONS IN THE HOSPITAL
     Route: 042
  3. INFLIXIMAB [Suspect]
     Active Substance: INFLIXIMAB
     Dosage: TWO EMERGENCY INFUSIONS IN THE HOSPITAL
     Route: 042
  4. INFLIXIMAB [Suspect]
     Active Substance: INFLIXIMAB
     Dosage: MONTHLY, 5 AMPOULES THE FIRST MONTH AND 4 THE NEXT, AND SO ON
     Route: 042
     Dates: start: 202304
  5. AZATHIOPRINE [Concomitant]
     Active Substance: AZATHIOPRINE
     Indication: Crohn^s disease
     Dosage: 3 CAPSULES/DAY
     Route: 048

REACTIONS (5)
  - Crohn^s disease [Recovered/Resolved]
  - Blood iron decreased [Recovered/Resolved]
  - Asthenia [Recovered/Resolved]
  - Intentional product use issue [Unknown]
  - Drug effect less than expected [Unknown]

NARRATIVE: CASE EVENT DATE: 20230503
